FAERS Safety Report 9239693 (Version 1)
Quarter: 2013Q2

REPORT INFORMATION
  Report Type: Spontaneous
  Country: US (occurrence: US)
  Receive Date: 20130418
  Receipt Date: 20130418
  Transmission Date: 20140414
  Serious: Yes (Other)
  Sender: FDA-Public Use
  Company Number: US-TEVA-307009USA

PATIENT
  Age: 61 Year
  Sex: Female
  Weight: 73.09 kg

DRUGS (8)
  1. VENLAFAXINE [Suspect]
     Indication: INSOMNIA
     Dosage: 150 MILLIGRAM DAILY;
     Route: 048
     Dates: start: 201108, end: 2011
  2. VENLAFAXINE [Suspect]
     Indication: DEPRESSION
  3. VENLAFAXINE [Suspect]
     Indication: INSOMNIA
     Dosage: 150 MILLIGRAM DAILY;
     Route: 048
     Dates: end: 2011
  4. VENLAFAXINE [Suspect]
     Indication: DEPRESSION
  5. AMITRIPTYLINE HYDROCHLORIDE [Concomitant]
     Indication: FIBROMYALGIA
     Dosage: 50 MILLIGRAM DAILY;
  6. PROGESTA CARE [Concomitant]
     Indication: HOT FLUSH
  7. BONE UP JARROW: CALCIUM, BORON, GLUCOSAMINE HCL, VITAMIN D [Concomitant]
     Indication: OSTEOPOROSIS
  8. MULTIVITAMIN [Concomitant]

REACTIONS (1)
  - Brain neoplasm [Unknown]
